FAERS Safety Report 6361366-9 (Version None)
Quarter: 2009Q3

REPORT INFORMATION
  Report Type: 
  Country: None (occurrence: None)
  Receive Date: 20090918
  Receipt Date: 20090911
  Transmission Date: 20100115
  Serious: Yes (Hospitalization)
  Sender: FDA-Public Use
  Company Number: B0594019A

PATIENT
  Sex: Female

DRUGS (1)
  1. AUGMENTIN '125' [Suspect]
     Indication: ANTIBIOTIC PROPHYLAXIS
     Dosage: 1G PER DAY
     Route: 048
     Dates: start: 20090902, end: 20090902

REACTIONS (3)
  - ANAPHYLACTIC SHOCK [None]
  - HYPOTENSION [None]
  - LOSS OF CONSCIOUSNESS [None]
